FAERS Safety Report 7097318-3 (Version None)
Quarter: 2010Q4

REPORT INFORMATION
  Report Type: 
  Country: None (occurrence: None)
  Receive Date: 20101111
  Receipt Date: 20100406
  Transmission Date: 20110411
  Serious: No
  Sender: FDA-Public Use
  Company Number: US-KINGPHARMUSA00001-K201000422

PATIENT
  Age: 37 Year
  Sex: Male
  Weight: 70.295 kg

DRUGS (4)
  1. LEVOXYL [Suspect]
     Dosage: UNK
  2. CYTOMEL [Suspect]
     Indication: AUTOIMMUNE THYROIDITIS
     Dosage: 25 MCG, Q AM + 12.5 Q AFTERNOON
     Dates: start: 20090101
  3. CYTOMEL [Suspect]
     Dosage: 25 MCG Q AM, 12.5 MCG Q AFTERNOON
     Dates: start: 20100301
  4. CYTOMEL [Suspect]
     Dosage: UNK

REACTIONS (5)
  - FATIGUE [None]
  - FEELING COLD [None]
  - HYPERSOMNIA [None]
  - PERIPHERAL COLDNESS [None]
  - TRI-IODOTHYRONINE DECREASED [None]
